FAERS Safety Report 8807978 (Version 2)
Quarter: 2015Q1

REPORT INFORMATION
  Report Type: Report from Study
  Country: US (occurrence: US)
  Receive Date: 20120925
  Receipt Date: 20150317
  Transmission Date: 20150721
  Serious: Yes (Death, Hospitalization)
  Sender: FDA-Public Use
  Company Number: US-ROCHE-1122949

PATIENT
  Age: 60 Year
  Sex: Male

DRUGS (27)
  1. KYTRIL [Concomitant]
     Active Substance: GRANISETRON HYDROCHLORIDE
     Route: 065
  2. ROBAXIN [Concomitant]
     Active Substance: METHOCARBAMOL
  3. BENADRYL [Concomitant]
     Active Substance: DIPHENHYDRAMINE HYDROCHLORIDE
     Route: 065
  4. OMNIPAQUE [Concomitant]
     Active Substance: IOHEXOL
     Route: 065
  5. SENOKOT [Concomitant]
     Active Substance: SENNOSIDES
  6. COLACE [Concomitant]
     Active Substance: DOCUSATE SODIUM
  7. TAGAMET [Concomitant]
     Active Substance: CIMETIDINE
     Route: 065
  8. AZITHROMYCIN [Concomitant]
     Active Substance: AZITHROMYCIN ANHYDROUS
  9. TAXOL [Concomitant]
     Active Substance: PACLITAXEL
  10. ATROVENT [Concomitant]
     Active Substance: IPRATROPIUM BROMIDE
  11. DILAUDID [Concomitant]
     Active Substance: HYDROMORPHONE HYDROCHLORIDE
  12. PROCRIT [Concomitant]
     Active Substance: ERYTHROPOIETIN
     Route: 065
  13. ATIVAN [Concomitant]
     Active Substance: LORAZEPAM
  14. LIDODERM [Concomitant]
     Active Substance: LIDOCAINE
     Route: 065
  15. AVASTIN [Suspect]
     Active Substance: BEVACIZUMAB
     Indication: LUNG NEOPLASM MALIGNANT
     Route: 065
     Dates: start: 20061122
  16. ZOFRAN [Concomitant]
     Active Substance: ONDANSETRON HYDROCHLORIDE
     Route: 065
  17. ALIMTA [Concomitant]
     Active Substance: PEMETREXED DISODIUM
  18. DECADRON [Concomitant]
     Active Substance: DEXAMETHASONE
     Route: 065
  19. VITAMIN B12 [Concomitant]
     Active Substance: CYANOCOBALAMIN
  20. DURAGESIC [Concomitant]
     Active Substance: FENTANYL
  21. REGLAN [Concomitant]
     Active Substance: METOCLOPRAMIDE HYDROCHLORIDE
  22. CARBOPLATIN. [Concomitant]
     Active Substance: CARBOPLATIN
     Route: 065
  23. GEMZAR [Concomitant]
     Active Substance: GEMCITABINE HYDROCHLORIDE
     Route: 065
  24. NEULASTA [Concomitant]
     Active Substance: PEGFILGRASTIM
     Route: 065
  25. PARAPLATIN [Concomitant]
     Active Substance: CARBOPLATIN
  26. ALOXI [Concomitant]
     Active Substance: PALONOSETRON HYDROCHLORIDE
     Route: 065
  27. TRIAMCINOLONE [Concomitant]
     Active Substance: TRIAMCINOLONE

REACTIONS (30)
  - Musculoskeletal pain [Unknown]
  - Upper respiratory tract congestion [Unknown]
  - Arthralgia [Unknown]
  - Productive cough [Unknown]
  - Decreased appetite [Unknown]
  - Pleural effusion [Unknown]
  - Pain [Unknown]
  - Malaise [Recovering/Resolving]
  - Constipation [Unknown]
  - Muscle spasms [Unknown]
  - Headache [Unknown]
  - Sinusitis [Unknown]
  - Deafness [Unknown]
  - Death [Fatal]
  - Vomiting [Recovering/Resolving]
  - Adrenomegaly [Unknown]
  - Atelectasis [Recovered/Resolved]
  - Lymphadenopathy [Unknown]
  - Abdominal pain [Unknown]
  - Rhinorrhoea [Unknown]
  - Bone pain [Unknown]
  - Retroperitoneal lymphadenopathy [Unknown]
  - Otitis media [Unknown]
  - Insomnia [Unknown]
  - Disease progression [Unknown]
  - Neoplasm [Unknown]
  - Nausea [Unknown]
  - Tumour necrosis [Unknown]
  - Cerebral ischaemia [Unknown]
  - Fatigue [Unknown]

NARRATIVE: CASE EVENT DATE: 200804
